FAERS Safety Report 6900312-3 (Version None)
Quarter: 2010Q3

REPORT INFORMATION
  Report Type: 
  Country: None (occurrence: None)
  Receive Date: 20100708
  Receipt Date: 20100326
  Transmission Date: 20110219
  Serious: Yes (Other)
  Sender: FDA-Public Use
  Company Number: 2010040040

PATIENT
  Age: 60 Year
  Sex: Female
  Weight: 125.6 kg

DRUGS (5)
  1. CHANTIX [Suspect]
     Indication: SMOKING CESSATION THERAPY
     Dosage: 0.5 MG, 1X/DAY, ORAL 0.5 MG, 2X/DAY, ORAL
     Route: 048
     Dates: start: 20100315, end: 20100301
  2. CHANTIX [Suspect]
     Indication: SMOKING CESSATION THERAPY
     Dosage: 0.5 MG, 1X/DAY, ORAL 0.5 MG, 2X/DAY, ORAL
     Route: 048
     Dates: start: 20100301
  3. CELEBREX [Concomitant]
  4. DARVOCET [Concomitant]
  5. TRICOR [Concomitant]

REACTIONS (1)
  - HYPERTENSION [None]
